FAERS Safety Report 6259737-4 (Version None)
Quarter: 2009Q3

REPORT INFORMATION
  Report Type: 
  Country: None (occurrence: None)
  Receive Date: 20090701
  Receipt Date: 20090625
  Transmission Date: 20100115
  Serious: Yes (Other)
  Sender: FDA-Public Use
  Company Number: CHPA2009US14231

PATIENT

DRUGS (1)
  1. EX-LAX UNKNOWN SENNA (NCH) (SENNA GLYCOSIDES (CA SALTS OF PURIFIED SEN [Suspect]
     Indication: LAXATIVE SUPPORTIVE CARE
     Dosage: ORAL
     Route: 048

REACTIONS (1)
  - ATRIAL FLUTTER [None]
